FAERS Safety Report 25497317 (Version 1)
Quarter: 2025Q3

REPORT INFORMATION
  Report Type: Spontaneous
  Country: BR (occurrence: BR)
  Receive Date: 20250701
  Receipt Date: 20250701
  Transmission Date: 20251021
  Serious: Yes (Hospitalization, Other)
  Sender: NOVO NORDISK
  Company Number: BR-NOVOPROD-1465166

PATIENT
  Sex: Female

DRUGS (1)
  1. RYBELSUS [Suspect]
     Active Substance: SEMAGLUTIDE
     Indication: Product used for unknown indication

REACTIONS (6)
  - Blood pressure decreased [Unknown]
  - Unevaluable event [Unknown]
  - Hypoaesthesia [Unknown]
  - Unresponsive to stimuli [Unknown]
  - Heart rate decreased [Unknown]
  - Asthenia [Not Recovered/Not Resolved]
